FAERS Safety Report 7164645-0 (Version None)
Quarter: 2010Q4

REPORT INFORMATION
  Report Type: 
  Country: None (occurrence: None)
  Receive Date: 20101215
  Receipt Date: 20101206
  Transmission Date: 20110411
  Serious: Yes (Hospitalization, Other)
  Sender: FDA-Public Use
  Company Number: JP-NOVOPROD-319375

PATIENT
  Age: 57 Year
  Sex: Male
  Weight: 48 kg

DRUGS (12)
  1. NOVORAPID CHU PENFILL [Suspect]
     Indication: TYPE 2 DIABETES MELLITUS
     Dosage: 12 U, QD
     Route: 058
     Dates: start: 20090820
  2. NOVORAPID 30 MIX CHU PENFILL [Suspect]
     Indication: TYPE 2 DIABETES MELLITUS
     Dosage: UNK
     Route: 058
  3. LANTUS [Suspect]
     Indication: TYPE 2 DIABETES MELLITUS
     Dosage: 6 U, QD
     Route: 058
     Dates: start: 20090820, end: 20091107
  4. SEIBULE [Concomitant]
     Indication: TYPE 2 DIABETES MELLITUS
     Dosage: 150 MG, QD
     Route: 048
     Dates: start: 20090820, end: 20091107
  5. BASEN [Concomitant]
     Indication: TYPE 2 DIABETES MELLITUS
     Dosage: 0.2 MG, QD
     Route: 048
     Dates: start: 20091109
  6. TAKEPRON [Concomitant]
     Dosage: 15 MG, QD
     Route: 048
     Dates: start: 20090820
  7. URSO                               /00465701/ [Concomitant]
     Indication: CHOLELITHIASIS
     Dosage: 300 MG, QD
     Route: 048
     Dates: start: 20090820
  8. ADALAT CC [Concomitant]
     Indication: HYPERTENSION
     Dosage: 40 MG, QD
     Route: 048
     Dates: start: 20090820
  9. HALCION [Concomitant]
     Dosage: UNK
     Route: 048
     Dates: start: 20090820
  10. ALEVIATIN                          /00017401/ [Concomitant]
     Indication: CEREBRAL INFARCTION
     Dosage: 2.4 MG, QD
     Route: 048
     Dates: start: 20091116
  11. PLAVIX [Concomitant]
     Indication: CEREBRAL INFARCTION
     Dosage: 75 MG, QD
     Route: 048
     Dates: start: 20091208
  12. OLMETEC [Concomitant]
     Indication: HYPERTENSION
     Dosage: 40 MG, QD
     Route: 048
     Dates: start: 20090820

REACTIONS (9)
  - ABNORMAL BEHAVIOUR [None]
  - DEHYDRATION [None]
  - GRAND MAL CONVULSION [None]
  - HEMIPLEGIA [None]
  - HYPERGLYCAEMIA [None]
  - HYPOGLYCAEMIA [None]
  - MONOPLEGIA [None]
  - RHABDOMYOLYSIS [None]
  - SPEECH DISORDER [None]
